FAERS Safety Report 26073790 (Version 1)
Quarter: 2025Q4

REPORT INFORMATION
  Report Type: Spontaneous
  Country: GB (occurrence: GB)
  Receive Date: 20251121
  Receipt Date: 20251121
  Transmission Date: 20260117
  Serious: Yes (Other)
  Sender: TORRENT PHARMA INC.
  Company Number: None

PATIENT
  Sex: Female

DRUGS (1)
  1. ESCITALOPRAM [Suspect]
     Active Substance: ESCITALOPRAM OXALATE
     Indication: Adverse drug reaction
     Dosage: 10MG
     Route: 065
     Dates: start: 20250906

REACTIONS (7)
  - Dry eye [Not Recovered/Not Resolved]
  - Pain [Unknown]
  - Nausea [Unknown]
  - Dizziness [Unknown]
  - Inflammation [Unknown]
  - Blindness [Unknown]
  - Vitreous floaters [Unknown]

NARRATIVE: CASE EVENT DATE: 20250912
